FAERS Safety Report 15979181 (Version 1)
Quarter: 2019Q1

REPORT INFORMATION
  Report Type: Spontaneous
  Country: US (occurrence: US)
  Receive Date: 20190215
  Receipt Date: 20190215
  Transmission Date: 20190418
  Serious: Yes (Disabling, Other)
  Sender: FDA-Public Use
  Company Number: None

PATIENT
  Age: 55 Year
  Sex: Female
  Weight: 99 kg

DRUGS (8)
  1. TRAJENTA [Concomitant]
     Active Substance: LINAGLIPTIN
  2. TYLENOL [Concomitant]
     Active Substance: ACETAMINOPHEN
  3. ATENOLOL. [Concomitant]
     Active Substance: ATENOLOL
  4. LORATADINE. [Concomitant]
     Active Substance: LORATADINE
  5. SIMVASTATIN. [Concomitant]
     Active Substance: SIMVASTATIN
  6. ALEVE [Concomitant]
     Active Substance: NAPROXEN SODIUM
  7. PIOGLITAZONE 15MG, TAKE 1-2 TABS DAILY (WAS TAKING AT HS) [Suspect]
     Active Substance: PIOGLITAZONE
     Indication: TYPE 2 DIABETES MELLITUS
     Dosage: QUANTITY:2 TABLET(S); AT BEDTIME?
     Route: 048
  8. FLONASE [Concomitant]
     Active Substance: FLUTICASONE PROPIONATE

REACTIONS (4)
  - Weight increased [None]
  - Menopause delayed [None]
  - Weight decreased [None]
  - Polymenorrhoea [None]

NARRATIVE: CASE EVENT DATE: 20180630
